FAERS Safety Report 17917301 (Version 1)
Quarter: 2020Q2

REPORT INFORMATION
  Report Type: Report from Study
  Country: TW (occurrence: TW)
  Receive Date: 20200619
  Receipt Date: 20200619
  Transmission Date: 20200714
  Serious: Yes (Hospitalization, Other)
  Sender: FDA-Public Use
  Company Number: TW-UCBSA-2020023742

PATIENT
  Age: 79 Year
  Sex: Female
  Weight: 58 kg

DRUGS (8)
  1. METHOTREXATE. [Concomitant]
     Active Substance: METHOTREXATE
     Indication: RHEUMATOID ARTHRITIS
     Dosage: 10 MILLIGRAM, WEEKLY (QW)
     Route: 048
     Dates: start: 20070208, end: 20200609
  2. CERTOLIZUMAB PEGOL [Suspect]
     Active Substance: CERTOLIZUMAB PEGOL
     Indication: RHEUMATOID ARTHRITIS
     Dosage: 400 MILLIGRAM, EV 2 WEEKS(QOW)
     Route: 058
     Dates: start: 20191002, end: 20191030
  3. FLURBIPROFEN. [Concomitant]
     Active Substance: FLURBIPROFEN
     Indication: RHEUMATOID ARTHRITIS
     Dosage: 40 MILLIGRAM, AS NEEDED (PRN)
     Route: 061
     Dates: start: 20180411
  4. ULTRACET [Concomitant]
     Active Substance: ACETAMINOPHEN\TRAMADOL HYDROCHLORIDE
     Indication: RHEUMATOID ARTHRITIS
     Dosage: UNK
     Route: 048
     Dates: start: 20200219
  5. DENOSUMAB [Concomitant]
     Active Substance: DENOSUMAB
     Indication: OSTEOPOROSIS
     Dosage: 60 MILLIGRAM, EV 6 MONTHS
     Route: 058
     Dates: start: 20200513, end: 20200513
  6. DESLORATADINE. [Concomitant]
     Active Substance: DESLORATADINE
     Indication: ALLERGIC COUGH
     Dosage: 5 MILLIGRAM, ONCE DAILY (QD)
     Route: 048
     Dates: start: 20190904
  7. CERTOLIZUMAB PEGOL [Suspect]
     Active Substance: CERTOLIZUMAB PEGOL
     Dosage: 400 MILLIGRAM, MONTHLY (QM)
     Route: 058
     Dates: start: 20191127, end: 20200513
  8. METHYLPREDNISOLONE. [Concomitant]
     Active Substance: METHYLPREDNISOLONE
     Indication: RHEUMATOID ARTHRITIS
     Dosage: 2 MILLIGRAM, AS NEEDED (PRN)
     Route: 048
     Dates: start: 20070208

REACTIONS (1)
  - Malignant ascites [Not Recovered/Not Resolved]

NARRATIVE: CASE EVENT DATE: 20200522
